FAERS Safety Report 7327727-6 (Version None)
Quarter: 2011Q1

REPORT INFORMATION
  Report Type: 
  Country: None (occurrence: None)
  Receive Date: 20110303
  Receipt Date: 20101029
  Transmission Date: 20110831
  Serious: Yes (Death, Life-Threatening)
  Sender: FDA-Public Use
  Company Number: FR-GENZYME-CLOF-1000476

PATIENT
  Sex: Female
  Weight: 57 kg

DRUGS (7)
  1. VALACICLOVIR [Concomitant]
     Indication: PROPHYLAXIS
     Dosage: 500 MG, BID
     Dates: start: 20090309
  2. ARA-C [Suspect]
     Indication: ACUTE MYELOID LEUKAEMIA
     Dosage: 1590 MG, QDX5
     Route: 042
     Dates: start: 20090310, end: 20090314
  3. CLOFARABINE [Suspect]
     Indication: ACUTE MYELOID LEUKAEMIA
     Dates: start: 20090310, end: 20090314
  4. ONDANSETRON [Concomitant]
     Indication: NAUSEA
     Dosage: 8 MG, QD
     Dates: start: 20090310, end: 20090316
  5. LINEZOLID [Concomitant]
     Indication: TOXIC EPIDERMAL NECROLYSIS
     Dosage: UNK
     Dates: start: 20090317, end: 20090319
  6. APREPITANT [Concomitant]
     Indication: NAUSEA
     Dosage: 80 MG, QD
     Dates: start: 20090311, end: 20090316
  7. METHYLPREDNISOLONE [Concomitant]
     Indication: TOXIC EPIDERMAL NECROLYSIS
     Dosage: UNK
     Dates: start: 20090315, end: 20090324

REACTIONS (2)
  - GENERALISED ERYTHEMA [None]
  - TOXIC EPIDERMAL NECROLYSIS [None]
